FAERS Safety Report 7581063-1 (Version None)
Quarter: 2011Q2

REPORT INFORMATION
  Report Type: 
  Country: None (occurrence: None)
  Receive Date: 20110629
  Receipt Date: 20110623
  Transmission Date: 20111010
  Serious: Yes (Death, Other)
  Sender: FDA-Public Use
  Company Number: PHHY2011AU56714

PATIENT
  Age: 48 Year

DRUGS (5)
  1. NORDIAZEPAM [Suspect]
     Dosage: UNK
  2. NORTRIPTYLINE HCL [Suspect]
     Dosage: UNK
  3. METHADONE HCL [Suspect]
     Dosage: UNK
  4. DIAZEPAM [Suspect]
     Dosage: UNK
  5. AMITRIPTYLINE HCL [Suspect]
     Dosage: UNK

REACTIONS (3)
  - ARRHYTHMIA [None]
  - ACCIDENTAL POISONING [None]
  - TOXICITY TO VARIOUS AGENTS [None]
